FAERS Safety Report 24905610 (Version 1)
Quarter: 2025Q1

REPORT INFORMATION
  Report Type: Report from Study
  Country: US (occurrence: US)
  Receive Date: 20250130
  Receipt Date: 20250130
  Transmission Date: 20250408
  Serious: No
  Sender: HRA PHARMA
  Company Number: US-ORG100014127-2024000108

PATIENT
  Age: 58 Year
  Sex: Female

DRUGS (10)
  1. METOPIRONE [Suspect]
     Active Substance: METYRAPONE
     Indication: Pituitary-dependent Cushing^s syndrome
     Route: 048
     Dates: start: 20240328
  2. ALEVE TAB 220MG [Concomitant]
     Indication: Product used for unknown indication
  3. CARVEDILOL [Concomitant]
     Active Substance: CARVEDILOL
     Indication: Product used for unknown indication
  4. LANTUS SOLOSTAR INJ 100/M [Concomitant]
     Indication: Product used for unknown indication
  5. METFORMIN [Concomitant]
     Active Substance: METFORMIN HYDROCHLORIDE
     Indication: Product used for unknown indication
  6. NIFEDIPINE TAB 90MG ER [Concomitant]
     Indication: Product used for unknown indication
  7. OZEMPIC INJ 2MG/3ML [Concomitant]
     Indication: Product used for unknown indication
  8. PANTOPRAZOLE TAB 40MG [Concomitant]
     Indication: Product used for unknown indication
  9. TYLENOL TAB 500MG [Concomitant]
     Indication: Product used for unknown indication
  10. VALSARTAN [Concomitant]
     Active Substance: VALSARTAN
     Indication: Product used for unknown indication

REACTIONS (4)
  - Myalgia [Not Recovered/Not Resolved]
  - Fatigue [Not Recovered/Not Resolved]
  - Dizziness [Not Recovered/Not Resolved]
  - Off label use [Not Recovered/Not Resolved]

NARRATIVE: CASE EVENT DATE: 20240328
